FAERS Safety Report 10438631 (Version 1)
Quarter: 2014Q3

REPORT INFORMATION
  Report Type: Spontaneous
  Country: US (occurrence: US)
  Receive Date: 20140908
  Receipt Date: 20140908
  Transmission Date: 20150326
  Serious: No
  Sender: FDA-Public Use
  Company Number: US-BRISTOL-MYERS SQUIBB COMPANY-21172366

PATIENT
  Age: 57 Year
  Sex: Male
  Weight: 81.63 kg

DRUGS (10)
  1. ABILIFY [Suspect]
     Active Substance: ARIPIPRAZOLE
     Indication: DEPRESSION
  2. DIAZEPAM. [Concomitant]
     Active Substance: DIAZEPAM
  3. LEVOTHYROXINE [Concomitant]
     Active Substance: LEVOTHYROXINE
  4. VITAMIN B12 [Concomitant]
     Active Substance: CYANOCOBALAMIN
  5. SEROQUEL [Suspect]
     Active Substance: QUETIAPINE FUMARATE
  6. HYDROCODONE [Concomitant]
     Active Substance: HYDROCODONE
     Dosage: 1DF:3.5/750MG
  7. PROMETHAZINE [Concomitant]
     Active Substance: PROMETHAZINE\PROMETHAZINE HYDROCHLORIDE
  8. DULOXETINE HCL [Concomitant]
     Active Substance: DULOXETINE HYDROCHLORIDE
  9. TRILIPIX [Concomitant]
     Active Substance: FENOFIBRIC ACID
  10. OMEPRAZOLE. [Concomitant]
     Active Substance: OMEPRAZOLE

REACTIONS (5)
  - Weight increased [Unknown]
  - Asthenia [Unknown]
  - Insomnia [Unknown]
  - Mood swings [Unknown]
  - Agitation [Unknown]
